FAERS Safety Report 9028134 (Version 1)
Quarter: 2013Q1

REPORT INFORMATION
  Report Type: Spontaneous
  Country: US (occurrence: US)
  Receive Date: 20130123
  Receipt Date: 20130123
  Transmission Date: 20140127
  Serious: Yes (Other)
  Sender: FDA-Public Use
  Company Number: PHEH2013US001784

PATIENT
  Sex: Male

DRUGS (1)
  1. ILARIS [Suspect]
     Dosage: 150 MG, UNK

REACTIONS (1)
  - Upper limb fracture [Unknown]
